FAERS Safety Report 8506161-7 (Version None)
Quarter: 2012Q3

REPORT INFORMATION
  Report Type: 
  Country: None (occurrence: None)
  Receive Date: 20120712
  Receipt Date: 20120710
  Transmission Date: 20120928
  Serious: Yes (Other)
  Sender: FDA-Public Use
  Company Number: PHEH2011US07761

PATIENT
  Sex: Female

DRUGS (1)
  1. GILENYA [Suspect]
     Indication: MULTIPLE SCLEROSIS
     Dosage: 0.5 MG, DAILY
     Route: 048
     Dates: start: 20110801

REACTIONS (7)
  - RED BLOOD CELL COUNT DECREASED [None]
  - URINARY RETENTION [None]
  - WHITE BLOOD CELL COUNT DECREASED [None]
  - PAIN IN EXTREMITY [None]
  - NEPHROLITHIASIS [None]
  - PAIN [None]
  - DECREASED APPETITE [None]
